FAERS Safety Report 10144420 (Version 1)
Quarter: 2014Q2

REPORT INFORMATION
  Report Type: Report from Study
  Country: US (occurrence: US)
  Receive Date: 20140430
  Receipt Date: 20140430
  Transmission Date: 20141212
  Serious: Yes (Other)
  Sender: FDA-Public Use
  Company Number: US-ABBVIE-14P-163-1228491-00

PATIENT
  Age: 62 Year
  Sex: Female
  Weight: 96.25 kg

DRUGS (14)
  1. HUMIRA [Suspect]
     Indication: PSORIATIC ARTHROPATHY
     Route: 058
     Dates: start: 201309, end: 20131016
  2. HUMIRA [Suspect]
     Route: 058
     Dates: start: 201402
  3. GLUCOPHAGE [Concomitant]
     Indication: DIABETES MELLITUS
  4. FERROUS SULFATE [Concomitant]
     Indication: ANAEMIA
  5. LYRICA [Concomitant]
     Indication: FIBROMYALGIA
  6. LOSARTAN [Concomitant]
     Indication: HYPERTENSION
  7. AMLODIPINE [Concomitant]
     Indication: HYPERTENSION
  8. LEVOTHYROXINE [Concomitant]
     Indication: HYPOTHYROIDISM
  9. MIRAPEX [Concomitant]
     Indication: RESTLESS LEGS SYNDROME
  10. OMEPRAZOLE [Concomitant]
     Indication: GASTROOESOPHAGEAL REFLUX DISEASE
  11. TRAMADOL [Concomitant]
     Indication: PAIN
  12. VITAMIN B-12 [Concomitant]
     Indication: VITAMIN SUPPLEMENTATION
  13. ZYRTEC [Concomitant]
     Indication: HYPERSENSITIVITY
  14. ECOTRIN [Concomitant]
     Indication: CARDIAC DISORDER

REACTIONS (3)
  - Neck pain [Recovering/Resolving]
  - Intervertebral disc protrusion [Unknown]
  - Shoulder arthroplasty [Unknown]
